FAERS Safety Report 20202357 (Version 1)
Quarter: 2021Q4

REPORT INFORMATION
  Report Type: Spontaneous
  Country: NL (occurrence: NL)
  Receive Date: 20211217
  Receipt Date: 20211217
  Transmission Date: 20220303
  Serious: Yes (Hospitalization, Other)
  Sender: FDA-Public Use
  Company Number: None

PATIENT

DRUGS (5)
  1. TRIPTODUR [Suspect]
     Active Substance: TRIPTORELIN
     Indication: Gender dysphoria
     Dosage: 1X EVERY 3 MONTHS (1 DOSAGE FORMS,3 M)
     Route: 065
     Dates: start: 2019
  2. TRIPTODUR [Suspect]
     Active Substance: TRIPTORELIN
     Indication: Off label use
  3. TRIPTODUR [Suspect]
     Active Substance: TRIPTORELIN
  4. TRIPTODUR [Suspect]
     Active Substance: TRIPTORELIN
  5. METHYLPHENIDATE [Concomitant]
     Active Substance: METHYLPHENIDATE
     Indication: Product used for unknown indication
     Dosage: (MODIFIED-RELEASE CAPSULE), 30 MG

REACTIONS (2)
  - Epiphysiolysis [Recovering/Resolving]
  - Off label use [Unknown]

NARRATIVE: CASE EVENT DATE: 20190101
